FAERS Safety Report 6271624-4 (Version None)
Quarter: 2009Q3

REPORT INFORMATION
  Report Type: 
  Country: None (occurrence: None)
  Receive Date: 20090717
  Receipt Date: 20090703
  Transmission Date: 20100115
  Serious: Yes (Other)
  Sender: FDA-Public Use
  Company Number: FR-ELI_LILLY_AND_COMPANY-FR200905000697

PATIENT
  Age: 66 Year
  Sex: Female
  Weight: 57 kg

DRUGS (10)
  1. ALIMTA [Suspect]
     Indication: LUNG NEOPLASM MALIGNANT
     Dosage: 500 MG/M2, EVERY THREE WEEKS
     Route: 042
     Dates: start: 20090120, end: 20090324
  2. CARBOPLATIN [Concomitant]
     Indication: LUNG NEOPLASM MALIGNANT
     Dosage: 390 MG, UNKNOWN
     Route: 042
     Dates: start: 20090120, end: 20090324
  3. ACTONEL [Concomitant]
     Dosage: UNK, UNKNOWN
     Route: 065
  4. LEVOTHYROX [Concomitant]
     Dosage: UNK, UNKNOWN
     Route: 065
  5. CIPRALAN [Concomitant]
     Dosage: UNK, UNKNOWN
     Route: 065
  6. TOCO [Concomitant]
     Dosage: UNK, UNKNOWN
     Route: 065
  7. PIASCLEDINE /00809501/ [Concomitant]
     Dosage: UNK, UNKNOWN
     Route: 065
  8. SPECIAFOLDINE [Concomitant]
     Indication: VITAMIN SUPPLEMENTATION
     Dosage: UNK, UNKNOWN
     Route: 048
  9. VITAMIN B-12 [Concomitant]
     Indication: VITAMIN SUPPLEMENTATION
     Dosage: UNK, UNKNOWN
     Route: 030
  10. CORTICOSTEROID NOS [Concomitant]
     Indication: PROPHYLAXIS
     Dosage: UNK, UNKNOWN
     Route: 048

REACTIONS (1)
  - CARDIAC FAILURE [None]
